FAERS Safety Report 18588432 (Version 2)
Quarter: 2021Q1

REPORT INFORMATION
  Report Type: Spontaneous
  Country: US (occurrence: US)
  Receive Date: 20201207
  Receipt Date: 20210222
  Transmission Date: 20210419
  Serious: No
  Sender: FDA-Public Use
  Company Number: US-BEH-2020125662

PATIENT
  Age: 63 Year
  Sex: Female

DRUGS (3)
  1. HIZENTRA [Suspect]
     Active Substance: HUMAN IMMUNOGLOBULIN G
     Indication: PRIMARY IMMUNODEFICIENCY SYNDROME
     Dosage: 8 GRAM EVERY 10 TO 14 DAYS
     Route: 058
  2. HIZENTRA [Suspect]
     Active Substance: HUMAN IMMUNOGLOBULIN G
     Indication: HYPOGAMMAGLOBULINAEMIA
     Dosage: 8 GRAM, QW
     Route: 058
     Dates: start: 20161230
  3. HIZENTRA [Suspect]
     Active Substance: HUMAN IMMUNOGLOBULIN G
     Dosage: 8 UNK
     Route: 058
     Dates: start: 20140201

REACTIONS (4)
  - No adverse event [Unknown]
  - Infusion site rash [Unknown]
  - Intentional product use issue [Unknown]
  - Infusion site rash [Recovered/Resolved]

NARRATIVE: CASE EVENT DATE: 20201015
